FAERS Safety Report 10649415 (Version 1)
Quarter: 2014Q4

REPORT INFORMATION
  Report Type: Spontaneous
  Country: GR (occurrence: GR)
  Receive Date: 20141212
  Receipt Date: 20141212
  Transmission Date: 20150529
  Serious: Yes (Life-Threatening)
  Sender: FDA-Public Use
  Company Number: GR-TEVA-527413ISR

PATIENT
  Age: 63 Year
  Sex: Female

DRUGS (6)
  1. ALOXI [Concomitant]
     Active Substance: PALONOSETRON HYDROCHLORIDE
  2. OXALIPLATIN TEVA [Suspect]
     Active Substance: OXALIPLATIN
     Indication: COLON CANCER METASTATIC
     Dosage: 2X100MG
     Route: 042
     Dates: start: 20130507, end: 20130507
  3. OXALIPLATIN TEVA [Suspect]
     Active Substance: OXALIPLATIN
     Indication: COLON CANCER METASTATIC
     Dosage: 1X30MG
     Route: 042
     Dates: start: 20130507, end: 20130507
  4. DEXATON [Concomitant]
  5. ZANTAC [Concomitant]
     Active Substance: RANITIDINE HYDROCHLORIDE
  6. FENISTIL [Concomitant]
     Active Substance: DIMETHINDENE

REACTIONS (3)
  - Discomfort [Recovered/Resolved]
  - Hypoaesthesia oral [Recovered/Resolved]
  - Dysphonia [Recovered/Resolved]

NARRATIVE: CASE EVENT DATE: 20130507
